FAERS Safety Report 4314151-3 (Version None)
Quarter: 2004Q1

REPORT INFORMATION
  Report Type: 
  Country: None (occurrence: None)
  Receive Date: 20040309
  Receipt Date: 20040303
  Transmission Date: 20041129
  Serious: Yes (Death)
  Sender: FDA-Public Use
  Company Number: 200412849GDDC

PATIENT
  Age: 7 Year
  Sex: 0

DRUGS (2)
  1. CEFOTAXIME [Suspect]
     Indication: MENINGITIS PNEUMOCOCCAL
     Dosage: DOSE: 200 MG/KG
  2. PENICILLIN G [Suspect]
     Indication: MENINGITIS PNEUMOCOCCAL
     Dosage: DOSE: 300,000 IU/L

REACTIONS (3)
  - MENINGITIS [None]
  - PATHOGEN RESISTANCE [None]
  - PNEUMONIA STREPTOCOCCAL [None]
